FAERS Safety Report 22228121 (Version 1)
Quarter: 2023Q2

REPORT INFORMATION
  Report Type: Spontaneous
  Country: CN (occurrence: CN)
  Receive Date: 20230419
  Receipt Date: 20230419
  Transmission Date: 20230722
  Serious: Yes (Other)
  Sender: FDA-Public Use
  Company Number: CN-PFIZER INC-PV202300070250

PATIENT
  Age: 13 Year
  Sex: Male
  Weight: 42 kg

DRUGS (1)
  1. CYTARABINE [Suspect]
     Active Substance: CYTARABINE
     Indication: Chemotherapy
     Dosage: 35 MG, 1X/DAY
     Route: 041
     Dates: start: 20230129, end: 20230129

REACTIONS (3)
  - Heart rate abnormal [Recovering/Resolving]
  - Blood fibrinogen decreased [Unknown]
  - Palpitations [Unknown]

NARRATIVE: CASE EVENT DATE: 20230129
